FAERS Safety Report 8826421 (Version 2)
Quarter: 2012Q4

REPORT INFORMATION
  Report Type: 
  Country: JP (occurrence: JP)
  Receive Date: 20121005
  Receipt Date: 20121107
  Transmission Date: 20130627
  Serious: Yes (Hospitalization)
  Sender: FDA-Public Use
  Company Number: JP-AMGEN-JPNSP2012062882

PATIENT
  Age: 64 Year
  Sex: Male
  Weight: 46 kg

DRUGS (10)
  1. VECTIBIX [Suspect]
     Indication: LARGE INTESTINE CARCINOMA
     Dosage: 240 mg, q2wk
     Route: 041
     Dates: start: 20120602, end: 20120925
  2. VECTIBIX [Suspect]
     Indication: COLON CANCER
     Route: 041
     Dates: start: 20120630, end: 20120914
  3. TOPOTECIN [Concomitant]
     Indication: COLON CANCER
     Route: 041
     Dates: start: 20120511, end: 20120914
  4. 5-FU [Concomitant]
     Indication: COLON CANCER
     Route: 040
     Dates: start: 20120511, end: 20120914
  5. 5-FU [Concomitant]
     Route: 041
     Dates: start: 20120511, end: 20120914
  6. LEVOFOLINATE [Concomitant]
     Indication: COLON CANCER
     Route: 041
     Dates: start: 20120511, end: 20120914
  7. GRANISETRON [Concomitant]
     Indication: PROPHYLAXIS
     Route: 041
     Dates: start: 20120511, end: 20120914
  8. FERROMIA [Concomitant]
     Indication: ANAEMIA
     Route: 048
     Dates: start: 20120622, end: 20120925
  9. DEXART [Concomitant]
     Indication: PROPHYLAXIS
     Route: 041
     Dates: start: 20120511, end: 20120914
  10. EQUA [Concomitant]
     Route: 048

REACTIONS (4)
  - Convulsion [Recovering/Resolving]
  - Hypocalcaemia [Recovered/Resolved]
  - Hypomagnesaemia [Recovering/Resolving]
  - Acne [Unknown]
